FAERS Safety Report 16389001 (Version 1)
Quarter: 2019Q2

REPORT INFORMATION
  Report Type: Report from Study
  Country: UG (occurrence: UG)
  Receive Date: 20190604
  Receipt Date: 20190604
  Transmission Date: 20190711
  Serious: Yes (Congenital Anomaly)
  Sender: FDA-Public Use
  Company Number: UG-VIIV HEALTHCARE LIMITED-UG2018GSK172097

PATIENT
  Age: 0 Day
  Sex: Female

DRUGS (3)
  1. DOLUTEGRAVIR [Suspect]
     Active Substance: DOLUTEGRAVIR
     Indication: HIV INFECTION
     Dosage: UNK
     Route: 064
     Dates: start: 20180508
  2. COTRIMOXAZOLE [Concomitant]
     Active Substance: SULFAMETHOXAZOLE\TRIMETHOPRIM
     Dosage: 120 MG, QD
     Dates: start: 20180807
  3. NEVIRAPINE. [Concomitant]
     Active Substance: NEVIRAPINE
     Indication: HIV INFECTION
     Dosage: 1.5 ML, QD
     Dates: start: 20180624

REACTIONS (1)
  - Birth mark [Not Recovered/Not Resolved]

NARRATIVE: CASE EVENT DATE: 20180623
